FAERS Safety Report 7916494-0 (Version None)
Quarter: 2011Q4

REPORT INFORMATION
  Report Type: 
  Country: None (occurrence: None)
  Receive Date: 20111114
  Receipt Date: 20111031
  Transmission Date: 20120403
  Serious: Yes (Other)
  Sender: FDA-Public Use
  Company Number: TPA2011A06894

PATIENT
  Age: 60 Year
  Sex: Male
  Weight: 146.9654 kg

DRUGS (8)
  1. ASPIRIN [Concomitant]
  2. ACTOS [Suspect]
     Indication: TYPE 2 DIABETES MELLITUS
     Dosage: 30 MG, 1 IN 1 D 45 MG, 1 IN 1 D, 30 MG, 1 IN 1 D, 15 MG, 1 IN 1 D
     Dates: start: 20060401, end: 20100601
  3. ACTOS [Suspect]
     Indication: TYPE 2 DIABETES MELLITUS
     Dosage: 30 MG, 1 IN 1 D 45 MG, 1 IN 1 D, 30 MG, 1 IN 1 D, 15 MG, 1 IN 1 D
     Dates: start: 20060101, end: 20060401
  4. ACTOS [Suspect]
     Indication: TYPE 2 DIABETES MELLITUS
     Dosage: 30 MG, 1 IN 1 D 45 MG, 1 IN 1 D, 30 MG, 1 IN 1 D, 15 MG, 1 IN 1 D
     Dates: start: 20100601, end: 20100701
  5. ACTOS [Suspect]
     Indication: TYPE 2 DIABETES MELLITUS
     Dosage: 30 MG, 1 IN 1 D 45 MG, 1 IN 1 D, 30 MG, 1 IN 1 D, 15 MG, 1 IN 1 D
     Dates: start: 20100701, end: 20111001
  6. TRICOR [Concomitant]
  7. GLUCOSAMINE (GLUCOSAMINE) [Concomitant]
  8. NIASPAN [Concomitant]

REACTIONS (1)
  - BLADDER CANCER RECURRENT [None]
